FAERS Safety Report 20729782 (Version 1)
Quarter: 2022Q2

REPORT INFORMATION
  Report Type: Spontaneous
  Country: BR (occurrence: BR)
  Receive Date: 20220420
  Receipt Date: 20220420
  Transmission Date: 20220721
  Serious: Yes (Other)
  Sender: FDA-Public Use
  Company Number: BR-NOVARTISPH-NVSC2022BR091464

PATIENT
  Age: 32 Year
  Sex: Female

DRUGS (1)
  1. PARLODEL [Suspect]
     Active Substance: BROMOCRIPTINE MESYLATE
     Indication: Product used for unknown indication
     Dosage: UNK
     Route: 065

REACTIONS (3)
  - Prolactin-producing pituitary tumour [Unknown]
  - Infertility [Unknown]
  - Product supply issue [Unknown]
